FAERS Safety Report 4544862-6 (Version None)
Quarter: 2005Q1

REPORT INFORMATION
  Report Type: 
  Country: None (occurrence: None)
  Receive Date: 20050103
  Receipt Date: 20050103
  Transmission Date: 20050727
  Serious: Yes (Other)
  Sender: FDA-Public Use
  Company Number: None

PATIENT
  Sex: Female
  Weight: 13.1543 kg

DRUGS (1)
  1. TRIMOX [Suspect]
     Indication: NASOPHARYNGITIS
     Dosage: 1 TSP    3X DAILY   ORAL
     Route: 048
     Dates: start: 20041227, end: 20041229

REACTIONS (3)
  - CRYING [None]
  - GAIT DISTURBANCE [None]
  - PAIN IN EXTREMITY [None]
